FAERS Safety Report 6088415-X (Version None)
Quarter: 2009Q1

REPORT INFORMATION
  Report Type: 
  Country: None (occurrence: None)
  Receive Date: 20090224
  Receipt Date: 20090218
  Transmission Date: 20090719
  Serious: Yes (Other)
  Sender: FDA-Public Use
  Company Number: US-PFIZER INC-2009155037

PATIENT
  Sex: Female
  Weight: 65.76 kg

DRUGS (11)
  1. LIPITOR [Suspect]
     Indication: BLOOD CHOLESTEROL INCREASED
     Dosage: 10 MG, 1X/DAY
     Dates: start: 19980101, end: 20071215
  2. LIPITOR [Suspect]
     Indication: BLOOD TRIGLYCERIDES INCREASED
  3. LIPITOR [Suspect]
     Indication: HYPERLIPIDAEMIA
  4. LIPITOR [Suspect]
     Indication: ARTERIOSCLEROSIS CORONARY ARTERY
  5. LISINOPRIL [Concomitant]
  6. PANTOPRAZOLE [Concomitant]
  7. FUROSEMIDE [Concomitant]
     Dosage: UNK
     Dates: start: 20070601
  8. POTASSIUM CHLORIDE [Concomitant]
  9. ZESTRIL [Concomitant]
     Dosage: UNK
     Dates: start: 20041101
  10. POTASSIUM CHLORIDE [Concomitant]
     Dosage: UNK
     Dates: start: 20070601
  11. OSCAL 500-D [Concomitant]
     Dosage: UNK
     Dates: start: 20010101

REACTIONS (10)
  - ALANINE AMINOTRANSFERASE INCREASED [None]
  - ASPARTATE AMINOTRANSFERASE INCREASED [None]
  - AXONAL NEUROPATHY [None]
  - BLOOD CHOLESTEROL INCREASED [None]
  - BLOOD TRIGLYCERIDES INCREASED [None]
  - BLOOD UREA INCREASED [None]
  - GAIT DISTURBANCE [None]
  - HIGH DENSITY LIPOPROTEIN DECREASED [None]
  - LOW DENSITY LIPOPROTEIN INCREASED [None]
  - MYOPATHY [None]
